FAERS Safety Report 12270203 (Version 1)
Quarter: 2016Q2

REPORT INFORMATION
  Report Type: Spontaneous
  Country: FR (occurrence: FR)
  Receive Date: 20160415
  Receipt Date: 20160415
  Transmission Date: 20160815
  Serious: Yes (Hospitalization)
  Sender: FDA-Public Use
  Company Number: FR-ASTRAZENECA-2016SE38565

PATIENT
  Age: 20384 Day
  Sex: Male

DRUGS (12)
  1. SIMVASTATIN. [Concomitant]
     Active Substance: SIMVASTATIN
  2. GLICLAZIDE [Concomitant]
     Active Substance: GLICLAZIDE
  3. BYDUREON [Suspect]
     Active Substance: EXENATIDE
     Indication: TYPE 2 DIABETES MELLITUS
     Route: 058
     Dates: start: 20160301, end: 20160319
  4. LANTUS [Concomitant]
     Active Substance: INSULIN GLARGINE
  5. NOVORAPID [Concomitant]
     Active Substance: INSULIN ASPART
  6. NOVONORM [Concomitant]
     Active Substance: REPAGLINIDE
  7. LEVOFLOXACIN. [Suspect]
     Active Substance: LEVOFLOXACIN
     Indication: OSTEITIS
     Route: 048
     Dates: start: 20160315, end: 20160322
  8. AUGMENTIN [Suspect]
     Active Substance: AMOXICILLIN\CLAVULANATE POTASSIUM
     Indication: OSTEOMYELITIS
     Route: 048
     Dates: start: 20160315
  9. COVERSYL [Concomitant]
     Active Substance: PERINDOPRIL
  10. METFORMINE [Concomitant]
     Active Substance: METFORMIN HYDROCHLORIDE
  11. TRAMADOL HYDROCHLORIDE. [Suspect]
     Active Substance: TRAMADOL HYDROCHLORIDE
     Indication: PAIN
     Route: 048
     Dates: start: 20160315, end: 20160319
  12. ALLOPURINOL. [Concomitant]
     Active Substance: ALLOPURINOL

REACTIONS (6)
  - Tachycardia [Recovered/Resolved]
  - Hyperhidrosis [Recovered/Resolved]
  - Nausea [Recovered/Resolved]
  - Vertigo [Recovered/Resolved]
  - Palpitations [Recovered/Resolved]
  - Diarrhoea [Recovered/Resolved]

NARRATIVE: CASE EVENT DATE: 20160319
